FAERS Safety Report 5451800-0 (Version None)
Quarter: 2007Q3

REPORT INFORMATION
  Report Type: 
  Country: None (occurrence: None)
  Receive Date: 20070913
  Receipt Date: 20070904
  Transmission Date: 20080115
  Serious: Yes (Other)
  Sender: FDA-Public Use
  Company Number: US-PFIZER INC-2007074438

PATIENT
  Sex: Female
  Weight: 77 kg

DRUGS (11)
  1. CHANTIX [Suspect]
     Indication: SMOKING CESSATION THERAPY
     Route: 048
  2. INSULIN [Concomitant]
  3. LANTUS [Concomitant]
  4. NOVOLOG [Concomitant]
  5. ACTOS [Concomitant]
  6. PLETAL [Concomitant]
  7. PLAVIX [Concomitant]
  8. SPIRIVA [Concomitant]
  9. XOPENEX [Concomitant]
  10. ADVAIR DISKUS 100/50 [Concomitant]
  11. SIMVASTATIN [Concomitant]

REACTIONS (4)
  - DRUG INEFFECTIVE [None]
  - INSOMNIA [None]
  - LYMPHADENOPATHY [None]
  - STRESS [None]
